FAERS Safety Report 5009470-1 (Version None)
Quarter: 2006Q2

REPORT INFORMATION
  Report Type: 
  Country: None (occurrence: None)
  Receive Date: 20060524
  Receipt Date: 20060502
  Transmission Date: 20061013
  Serious: Yes (Hospitalization)
  Sender: FDA-Public Use
  Company Number: US-BRISTOL-MYERS SQUIBB COMPANY-13364625

PATIENT
  Age: 54 Year
  Sex: Female
  Weight: 97 kg

DRUGS (2)
  1. ERBITUX [Suspect]
     Indication: CERVIX CARCINOMA
     Dosage: THERAPY INITIATED ON 07-OCT-05.  COURSE 9 ADM FROM 31-MAR-06 TO 14-APR-06. TOTAL DOSE ADM: 1424MG.
     Route: 042
     Dates: start: 20060331, end: 20060414
  2. CISPLATIN [Suspect]
     Indication: CERVIX CARCINOMA
     Dosage: THERAPY INITIATED ON 07-OCT-05.  GIVEN ON DAY 1 AND DAY 8.  TOTAL DOSE ADM: 114MG.
     Route: 042
     Dates: start: 20060407, end: 20060407

REACTIONS (1)
  - THROMBOSIS [None]
